FAERS Safety Report 6337498-8 (Version None)
Quarter: 2009Q3

REPORT INFORMATION
  Report Type: 
  Country: None (occurrence: None)
  Receive Date: 20090901
  Receipt Date: 20090901
  Transmission Date: 20100115
  Serious: Yes (Other)
  Sender: FDA-Public Use
  Company Number: None

PATIENT
  Sex: Male
  Weight: 75.2971 kg

DRUGS (2)
  1. PEG-INTRON [Suspect]
     Indication: HEPATITIS C
     Dosage: 120 MCG/0.5ML WEEKLY SQ
     Route: 058
     Dates: start: 20090824
  2. RIBAVIRIN [Suspect]
     Indication: HEPATITIS C
     Dosage: 200 MG 2 PO AM/ 3 PO PM PO
     Route: 048
     Dates: start: 20090824

REACTIONS (10)
  - DIZZINESS [None]
  - EYE SWELLING [None]
  - GAIT DISTURBANCE [None]
  - LIP SWELLING [None]
  - MUSCLE SPASMS [None]
  - NO REACTION ON PREVIOUS EXPOSURE TO DRUG [None]
  - PAIN [None]
  - PYREXIA [None]
  - SWELLING FACE [None]
  - URTICARIA [None]
